FAERS Safety Report 19898903 (Version 1)
Quarter: 2021Q3

REPORT INFORMATION
  Report Type: Spontaneous
  Country: CH (occurrence: CH)
  Receive Date: 20210929
  Receipt Date: 20210929
  Transmission Date: 20211014
  Serious: Yes (Hospitalization)
  Sender: FDA-Public Use
  Company Number: CH-ASTRAZENECA-2021A734437

PATIENT
  Age: 774 Month
  Sex: Male

DRUGS (12)
  1. MORPHINE [Concomitant]
     Active Substance: MORPHINE
     Route: 065
     Dates: start: 20210612, end: 20210612
  2. ACIDUM FOLINICUM [Concomitant]
     Active Substance: LEUCOVORIN
     Dosage: CYCLICAL
     Route: 065
     Dates: start: 20210419, end: 20210510
  3. DAFALGAN [Suspect]
     Active Substance: ACETAMINOPHEN
     Dosage: 1000 MG, 4 DAYS
     Route: 065
  4. NEXIUM [Concomitant]
     Active Substance: ESOMEPRAZOLE MAGNESIUM
     Route: 065
  5. FLUOROURACILE [Concomitant]
     Active Substance: FLUOROURACIL
     Dosage: CYCLICAL
     Route: 065
     Dates: start: 20210419, end: 20210510
  6. IBUPROFEN. [Suspect]
     Active Substance: IBUPROFEN
     Dosage: 400?600 MG 3X
     Route: 065
  7. GLUCOPHAGE [Suspect]
     Active Substance: METFORMIN HYDROCHLORIDE
     Dosage: 850 THEN 500 MG ONCE
     Route: 065
  8. IRINOTECAN [Concomitant]
     Active Substance: IRINOTECAN
     Route: 065
     Dates: start: 20210426, end: 20210426
  9. LAXOBERON [Concomitant]
     Active Substance: SODIUM PICOSULFATE
     Route: 065
  10. MORPHINE [Concomitant]
     Active Substance: MORPHINE
     Route: 065
     Dates: start: 20210702, end: 20210702
  11. CRESTOR [Suspect]
     Active Substance: ROSUVASTATIN CALCIUM
     Indication: DYSLIPIDAEMIA
     Route: 065
     Dates: start: 202005, end: 20210726
  12. TRAMAL [Concomitant]
     Active Substance: TRAMADOL
     Dosage: AS NECESSARY
     Route: 065

REACTIONS (2)
  - Cholestasis [Not Recovered/Not Resolved]
  - Hepatic cytolysis [Not Recovered/Not Resolved]

NARRATIVE: CASE EVENT DATE: 202107
